FAERS Safety Report 16859252 (Version 2)
Quarter: 2019Q4

REPORT INFORMATION
  Report Type: Spontaneous
  Country: ES (occurrence: ES)
  Receive Date: 20190926
  Receipt Date: 20191004
  Transmission Date: 20200122
  Serious: Yes (Other)
  Sender: FDA-Public Use
  Company Number: ES-009507513-1909ESP012072

PATIENT
  Sex: Female

DRUGS (2)
  1. IMPLANON NXT [Suspect]
     Active Substance: ETONOGESTREL
     Indication: CONTRACEPTION
     Dosage: THE IMPLANT
     Route: 059
     Dates: start: 2016, end: 201907
  2. IMPLANON NXT [Suspect]
     Active Substance: ETONOGESTREL
     Dosage: A NEW IMPLANT
     Route: 059
     Dates: start: 201907

REACTIONS (3)
  - Unintended pregnancy [Not Recovered/Not Resolved]
  - Pregnancy with implant contraceptive [Not Recovered/Not Resolved]
  - Complication associated with device [Not Recovered/Not Resolved]

NARRATIVE: CASE EVENT DATE: 2019
